FAERS Safety Report 9476143 (Version 1)
Quarter: 2013Q3

REPORT INFORMATION
  Report Type: Report from Study
  Country: JP (occurrence: JP)
  Receive Date: 20130826
  Receipt Date: 20130826
  Transmission Date: 20140515
  Serious: Yes (Other)
  Sender: FDA-Public Use
  Company Number: JP-JNJFOC-20130808303

PATIENT
  Age: 59 Year
  Sex: Female

DRUGS (35)
  1. PREZISTA [Suspect]
     Indication: HIV INFECTION
     Route: 048
     Dates: start: 20110614, end: 20110815
  2. NORVIR [Suspect]
     Indication: HIV INFECTION
     Route: 048
     Dates: start: 20110614, end: 20110815
  3. TRUVADA [Suspect]
     Indication: HIV INFECTION
     Route: 048
     Dates: start: 20110614
  4. ISENTRESS [Suspect]
     Indication: HIV INFECTION
     Route: 048
     Dates: start: 20110816
  5. PREDNISOLONE [Suspect]
     Indication: DRUG ERUPTION
     Route: 065
     Dates: start: 20110721, end: 20110817
  6. PREDNISOLONE [Suspect]
     Indication: DRUG ERUPTION
     Route: 065
     Dates: start: 20110804, end: 20110828
  7. PREDNISOLONE [Suspect]
     Indication: DRUG ERUPTION
     Route: 065
     Dates: start: 20110818, end: 20110824
  8. PREDNISOLONE [Suspect]
     Indication: DRUG ERUPTION
     Route: 065
     Dates: start: 20110624, end: 20110720
  9. PREDNISOLONE [Suspect]
     Indication: DRUG ERUPTION
     Route: 065
     Dates: start: 20110901, end: 20110904
  10. PREDNISOLONE [Suspect]
     Indication: DRUG ERUPTION
     Route: 065
     Dates: start: 20110905, end: 20110907
  11. PREDNISOLONE [Suspect]
     Indication: DRUG ERUPTION
     Route: 065
     Dates: start: 20110711, end: 20110727
  12. PREDNISOLONE [Suspect]
     Indication: DRUG ERUPTION
     Route: 065
     Dates: start: 20110704, end: 20110710
  13. PREDNISOLONE [Suspect]
     Indication: DRUG ERUPTION
     Route: 065
     Dates: start: 20110819, end: 20110831
  14. PREDNISOLONE [Suspect]
     Indication: DRUG ERUPTION
     Route: 065
     Dates: start: 20110627, end: 20110703
  15. VFEND [Suspect]
     Indication: ASPERGILLUS TEST
     Route: 048
     Dates: start: 20110816, end: 20120911
  16. ITRIZOLE [Concomitant]
     Indication: ASPERGILLUS TEST
     Route: 048
     Dates: start: 20110912, end: 20111103
  17. ITRIZOLE [Concomitant]
     Indication: ASPERGILLUS TEST
     Route: 048
     Dates: start: 20110711, end: 20110815
  18. TRAMACET [Concomitant]
     Indication: BACK PAIN
     Route: 048
     Dates: start: 20120720
  19. TRAMACET [Concomitant]
     Indication: BACK PAIN
     Route: 048
     Dates: start: 20111212, end: 20120719
  20. TRAMACET [Concomitant]
     Indication: BACK PAIN
     Route: 048
     Dates: start: 20111024, end: 20111211
  21. VALGANCICLOVIR HYDROCHLORIDE [Concomitant]
     Indication: CYTOMEGALOVIRUS TEST POSITIVE
     Route: 048
     Dates: start: 20110818, end: 20110822
  22. LANSOPRAZOLE [Concomitant]
     Indication: PROPHYLAXIS
     Route: 048
     Dates: start: 20110624
  23. TALION [Concomitant]
     Indication: DRUG ERUPTION
     Route: 048
     Dates: start: 20110627, end: 20110907
  24. SULFAMETHOXAZOLE + TRIMETHOPRIM [Concomitant]
     Indication: ANTIFUNGAL PROPHYLAXIS
     Route: 048
     Dates: start: 20110808, end: 20111012
  25. FLORID (MICONAZOLE NITRATE) [Concomitant]
     Indication: ORAL CANDIDIASIS
     Route: 049
     Dates: start: 20110818, end: 20110828
  26. URSO [Concomitant]
     Indication: HEPATIC FUNCTION ABNORMAL
     Route: 048
     Dates: start: 20110902, end: 20110904
  27. URSO [Concomitant]
     Indication: HEPATIC FUNCTION ABNORMAL
     Route: 048
     Dates: start: 20110905, end: 20111103
  28. MEDICON [Concomitant]
     Indication: COUGH
     Route: 048
     Dates: start: 20110624, end: 20110724
  29. TRANSAMIN [Concomitant]
     Indication: COUGH
     Route: 048
     Dates: start: 20110627, end: 20110814
  30. PREDOHAN [Concomitant]
     Indication: DRUG ERUPTION
     Route: 048
     Dates: start: 20110728, end: 20110803
  31. FOSAMAC [Concomitant]
     Indication: SPINAL COMPRESSION FRACTURE
     Route: 048
     Dates: start: 20111024
  32. FOSAMAC [Concomitant]
     Indication: OSTEOPOROSIS PROPHYLAXIS
     Route: 048
     Dates: start: 20111024
  33. ITRACONAZOLE [Concomitant]
     Indication: ASPERGILLUS TEST
     Route: 048
     Dates: start: 20120421, end: 20121115
  34. LYRICA [Concomitant]
     Indication: BACK PAIN
     Route: 048
     Dates: start: 20121005
  35. LYRICA [Concomitant]
     Indication: NASOPHARYNGITIS
     Route: 048
     Dates: start: 20121005

REACTIONS (8)
  - Hepatic function abnormal [Recovered/Resolved]
  - Spinal compression fracture [Not Recovered/Not Resolved]
  - Pain [Not Recovered/Not Resolved]
  - Fungal test positive [Not Recovered/Not Resolved]
  - Drug eruption [Recovered/Resolved]
  - Oral candidiasis [Recovered/Resolved]
  - Feeling cold [Not Recovered/Not Resolved]
  - Cytomegalovirus test positive [Recovered/Resolved]
